FAERS Safety Report 24386119 (Version 1)
Quarter: 2024Q4

REPORT INFORMATION
  Report Type: Spontaneous
  Country: US (occurrence: US)
  Receive Date: 20241001
  Receipt Date: 20241001
  Transmission Date: 20250115
  Serious: Yes (Life-Threatening, Hospitalization, Other)
  Sender: PURDUE
  Company Number: US-NAPPMUNDI-GBR-2024-0120032

PATIENT
  Age: 50 Year
  Sex: Female

DRUGS (1)
  1. HYDROMORPHONE HYDROCHLORIDE [Suspect]
     Active Substance: HYDROMORPHONE HYDROCHLORIDE
     Indication: Myelopathy
     Dosage: 4 MILLIGRAM, Q2H
     Route: 065

REACTIONS (2)
  - Empyema [Unknown]
  - Aspiration [Unknown]
